FAERS Safety Report 5319128-7 (Version None)
Quarter: 2007Q1

REPORT INFORMATION
  Report Type: 
  Country: None (occurrence: None)
  Receive Date: 20070201
  Receipt Date: 20060726
  Transmission Date: 20070707
  Serious: Yes (Other)
  Sender: FDA-Public Use
  Company Number: US-SHR-03-006591

PATIENT
  Sex: Female

DRUGS (3)
  1. MIRENA [Suspect]
     Dosage: SEE IMAGE
     Route: 015
     Dates: start: 20030321
  2. MIRENA [Suspect]
     Dosage: SEE IMAGE
     Route: 015
     Dates: start: 20030501
  3. MIRENA [Suspect]

REACTIONS (4)
  - BACK PAIN [None]
  - MEDICATION ERROR [None]
  - PAIN [None]
  - UTERINE PERFORATION [None]
